FAERS Safety Report 8948267 (Version 1)
Quarter: 2012Q4

REPORT INFORMATION
  Report Type: Report from Study
  Country: BR (occurrence: BR)
  Receive Date: 20121121
  Receipt Date: 20121121
  Transmission Date: 20130627
  Serious: Yes (Other)
  Sender: FDA-Public Use
  Company Number: BR-ASTELLAS-1088842

PATIENT
  Age: 26 Year
  Sex: Female
  Weight: 71.5 kg

DRUGS (2)
  1. MABTHERA [Suspect]
     Indication: B-CELL LYMPHOMA
     Dosage: Dosase Form: 375/m2
     Route: 042
     Dates: start: 20120711, end: 20120711
  2. MABTHERA [Suspect]
     Route: 058
     Dates: start: 20120725

REACTIONS (1)
  - Hypersensitivity [Recovered/Resolved]
